FAERS Safety Report 15575533 (Version 20)
Quarter: 2024Q2

REPORT INFORMATION
  Report Type: Spontaneous
  Country: US (occurrence: US)
  Receive Date: 20181101
  Receipt Date: 20240606
  Transmission Date: 20240716
  Serious: Yes (Life-Threatening, Hospitalization, Other)
  Sender: FDA-Public Use
  Company Number: US-PFIZER INC-2018067898

PATIENT
  Age: 79 Year
  Sex: Female

DRUGS (2)
  1. XELJANZ XR [Suspect]
     Active Substance: TOFACITINIB CITRATE
     Indication: Arthritis
     Dosage: 11 MG, 2X/DAY
  2. XELJANZ XR [Suspect]
     Active Substance: TOFACITINIB CITRATE
     Dosage: 5 MG, 1X/DAY

REACTIONS (26)
  - COVID-19 [Unknown]
  - Pneumonia [Unknown]
  - Back pain [Unknown]
  - Pain in extremity [Unknown]
  - Arthralgia [Unknown]
  - Influenza [Unknown]
  - Spinal fracture [Unknown]
  - Drug dependence [Unknown]
  - Hypoacusis [Unknown]
  - Pain [Not Recovered/Not Resolved]
  - Arthritis [Unknown]
  - Eye disorder [Unknown]
  - Gait disturbance [Unknown]
  - Ear pain [Unknown]
  - Anxiety [Unknown]
  - Chest pain [Unknown]
  - Lung disorder [Unknown]
  - Alopecia [Unknown]
  - Peripheral swelling [Unknown]
  - Oropharyngeal pain [Unknown]
  - Illness [Unknown]
  - Bone pain [Unknown]
  - Pharyngitis streptococcal [Unknown]
  - Dysstasia [Unknown]
  - Off label use [Unknown]
  - Product use issue [Unknown]
